FAERS Safety Report 10538608 (Version 1)
Quarter: 2014Q4

REPORT INFORMATION
  Report Type: Spontaneous
  Country: IE (occurrence: None)
  Receive Date: 20141021
  Receipt Date: 20141021
  Transmission Date: 20150529
  Serious: Yes (Hospitalization, Other)
  Sender: FDA-Public Use
  Company Number: ADR-2014-01920

PATIENT
  Age: 25 Year
  Sex: Female

DRUGS (4)
  1. GABAPENTIN. [Suspect]
     Active Substance: GABAPENTIN
  2. MORPHINE SULFATE. [Suspect]
     Active Substance: MORPHINE SULFATE
  3. BACLOFEN. [Suspect]
     Active Substance: BACLOFEN
     Indication: STIFF PERSON SYNDROME
  4. MIDAZOLAM [Suspect]
     Active Substance: MIDAZOLAM\MIDAZOLAM HYDROCHLORIDE

REACTIONS (4)
  - Stiff person syndrome [None]
  - Panic attack [None]
  - Distal intestinal obstruction syndrome [None]
  - Condition aggravated [None]

NARRATIVE: CASE EVENT DATE: 20140101
